FAERS Safety Report 8545845-1 (Version None)
Quarter: 2012Q3

REPORT INFORMATION
  Report Type: 
  Country: None (occurrence: None)
  Receive Date: 20120727
  Receipt Date: 20120104
  Transmission Date: 20120928
  Serious: No
  Sender: FDA-Public Use
  Company Number: US-ASTRAZENECA-2011SE69062

PATIENT
  Age: 63 Year
  Sex: Female

DRUGS (1)
  1. SEROQUEL [Suspect]
     Indication: BIPOLAR DISORDER
     Route: 048

REACTIONS (6)
  - ABNORMAL BEHAVIOUR [None]
  - POOR QUALITY SLEEP [None]
  - ANGER [None]
  - DEPRESSION [None]
  - DRUG DOSE OMISSION [None]
  - ADVERSE EVENT [None]
